FAERS Safety Report 16467256 (Version 4)
Quarter: 2020Q2

REPORT INFORMATION
  Report Type: Report from Study
  Country: RU (occurrence: RU)
  Receive Date: 20190624
  Receipt Date: 20200527
  Transmission Date: 20200713
  Serious: No
  Sender: FDA-Public Use
  Company Number: RU-ROCHE-2339477

PATIENT
  Age: 64 Year
  Sex: Female
  Weight: 77.9 kg

DRUGS (7)
  1. OMEPRAZOLE. [Concomitant]
     Active Substance: OMEPRAZOLE
     Dosage: SURGERY MEDICATION
     Route: 065
     Dates: start: 20190424, end: 20190424
  2. DICLOFENAC [Concomitant]
     Active Substance: DICLOFENAC
     Route: 065
     Dates: start: 20190522, end: 20190522
  3. ATEZOLIZUMAB. [Suspect]
     Active Substance: ATEZOLIZUMAB
     Indication: NEOPLASM
     Dosage: DATE OF MOST RECENT DOSE OF ATEZOLIZUMAB PRIOR TO AE ONSET ON 11/JUN/2019 1200 MG AT 11:55 (TOTAL VO
     Route: 042
     Dates: start: 20190521
  4. OMEPRAZOLE. [Concomitant]
     Active Substance: OMEPRAZOLE
     Dosage: PROPHYLAXIS OF GASTRIC EVENT
     Route: 065
     Dates: start: 20190522
  5. DICLOFENAC [Concomitant]
     Active Substance: DICLOFENAC
     Indication: PYREXIA
     Route: 065
     Dates: start: 20190521, end: 20190521
  6. RO6874281 (FAP IL2V MAB) [Suspect]
     Active Substance: SIMLUKAFUSP ALFA
     Indication: NEOPLASM
     Dosage: DATE OF MOST RECENT DOSE OF RO6874281 PRIOR TO AE ONSET ON 11/JUN/2019 10 MG AT 13:25 (TOTAL VOLUME
     Route: 042
     Dates: start: 20190521
  7. DICLOFENAC [Concomitant]
     Active Substance: DICLOFENAC
     Route: 065
     Dates: start: 20190611, end: 20190611

REACTIONS (1)
  - Cholestasis [Recovered/Resolved with Sequelae]

NARRATIVE: CASE EVENT DATE: 20190613
